FAERS Safety Report 11939646 (Version 3)
Quarter: 2016Q2

REPORT INFORMATION
  Report Type: Spontaneous
  Country: US (occurrence: US)
  Receive Date: 20160122
  Receipt Date: 20160414
  Transmission Date: 20160815
  Serious: No
  Sender: FDA-Public Use
  Company Number: US-ALEXION-A201600279

PATIENT
  Sex: Male

DRUGS (1)
  1. SOLIRIS [Suspect]
     Active Substance: ECULIZUMAB
     Indication: PAROXYSMAL NOCTURNAL HAEMOGLOBINURIA
     Dosage: UNK
     Route: 042

REACTIONS (9)
  - Swelling face [Unknown]
  - Peripheral swelling [Unknown]
  - Oedema peripheral [Unknown]
  - Dyspnoea [Unknown]
  - Incontinence [Unknown]
  - Chest discomfort [Unknown]
  - Weight increased [Not Recovered/Not Resolved]
  - Decreased appetite [Unknown]
  - Joint swelling [Unknown]
